FAERS Safety Report 9291031 (Version 2)
Quarter: 2013Q3

REPORT INFORMATION
  Report Type: Spontaneous
  Country: US (occurrence: US)
  Receive Date: 20130515
  Receipt Date: 20130806
  Transmission Date: 20140515
  Serious: No
  Sender: FDA-Public Use
  Company Number: US-009507513-1305USA009361

PATIENT
  Age: 42 Year
  Sex: Male
  Weight: 86.17 kg

DRUGS (6)
  1. CLARITIN REDITABS [Suspect]
     Indication: RHINORRHOEA
     Dosage: 10 MG, ONCE
     Route: 048
     Dates: start: 20130426
  2. CLARITIN REDITABS [Suspect]
     Indication: SNEEZING
     Dosage: 10 MG, QD
     Route: 048
     Dates: start: 201305, end: 201307
  3. CLARITIN REDITABS [Suspect]
     Indication: THROAT IRRITATION
  4. CLARITIN REDITABS [Suspect]
     Indication: HYPERSENSITIVITY
  5. CLARITIN REDITABS [Suspect]
     Indication: UPPER-AIRWAY COUGH SYNDROME
  6. CLARITIN REDITABS [Suspect]
     Indication: MEDICAL OBSERVATION

REACTIONS (2)
  - Drug ineffective [Unknown]
  - Drug effect delayed [Unknown]
